FAERS Safety Report 5664562-9 (Version None)
Quarter: 2008Q1

REPORT INFORMATION
  Report Type: 
  Country: None (occurrence: None)
  Receive Date: 20080314
  Receipt Date: 20080311
  Transmission Date: 20080703
  Serious: Yes (Death, Hospitalization)
  Sender: FDA-Public Use
  Company Number: US-JNJFOC-20080203715

PATIENT
  Sex: Female
  Weight: 113.4 kg

DRUGS (9)
  1. LEVAQUIN [Suspect]
     Indication: INFECTION
     Route: 042
  2. FLUCONAZOLE [Suspect]
     Route: 042
  3. FLUCONAZOLE [Suspect]
     Indication: INFECTION
     Route: 042
  4. LIPITOR [Suspect]
     Indication: HYPERLIPIDAEMIA
     Route: 065
  5. CEFEPIME [Concomitant]
     Indication: INFECTION
     Route: 042
  6. TPN [Concomitant]
     Indication: MEDICAL DIET
     Route: 065
  7. CLEOCIN HYDROCHLORIDE [Concomitant]
     Indication: INFECTION
     Route: 042
  8. LOVENOX [Concomitant]
     Indication: THROMBOSIS PROPHYLAXIS
     Route: 058
  9. SYNTHROID [Concomitant]
     Indication: HYPOTHYROIDISM
     Route: 042

REACTIONS (2)
  - DEATH [None]
  - TRANSAMINASES INCREASED [None]
